FAERS Safety Report 5140846-8 (Version None)
Quarter: 2006Q4

REPORT INFORMATION
  Report Type: 
  Country: None (occurrence: None)
  Receive Date: 20061026
  Receipt Date: 20061016
  Transmission Date: 20070319
  Serious: Yes (Hospitalization, Other)
  Sender: FDA-Public Use
  Company Number: 2006127027

PATIENT
  Age: 37 Year
  Sex: Female

DRUGS (2)
  1. ALPRAZOLAM [Suspect]
     Indication: SLEEP DISORDER
     Dosage: 0.25 MG (0.25 MG, 1 IN 1 D) ORAL
     Route: 048
     Dates: start: 20000101
  2. ACETAMINOPHEN [Concomitant]

REACTIONS (6)
  - ABDOMINAL HERNIA [None]
  - BREAST OPERATION [None]
  - DRUG DEPENDENCE [None]
  - MUSCULAR WEAKNESS [None]
  - RASH MACULO-PAPULAR [None]
  - RASH PRURITIC [None]
